FAERS Safety Report 9537509 (Version 1)
Quarter: 2013Q3

REPORT INFORMATION
  Report Type: Spontaneous
  Country: IT (occurrence: IT)
  Receive Date: 20130919
  Receipt Date: 20130919
  Transmission Date: 20140515
  Serious: Yes (Other)
  Sender: FDA-Public Use
  Company Number: IT-BRISTOL-MYERS SQUIBB COMPANY-19353523

PATIENT
  Age: 52 Year
  Sex: Male

DRUGS (2)
  1. REYATAZ [Suspect]
     Indication: HIV TEST POSITIVE
     Dosage: RYATAZ 1 DF= 300/100
  2. ISENTRESS [Suspect]
     Indication: HIV TEST POSITIVE

REACTIONS (2)
  - Rhabdomyolysis [Unknown]
  - Renal cancer [Unknown]
